FAERS Safety Report 19505257 (Version 1)
Quarter: 2021Q3

REPORT INFORMATION
  Report Type: Spontaneous
  Country: FR (occurrence: FR)
  Receive Date: 20210708
  Receipt Date: 20210708
  Transmission Date: 20211014
  Serious: Yes (Hospitalization, Other)
  Sender: FDA-Public Use
  Company Number: FR-SUN PHARMACEUTICAL INDUSTRIES LTD-2021R1-302624

PATIENT
  Age: 88 Year
  Sex: Female

DRUGS (3)
  1. CIPROFLOXACIN. [Suspect]
     Active Substance: CIPROFLOXACIN
     Indication: URINARY TRACT INFECTION
     Dosage: 250 MILLIGRAM, BID
     Route: 048
     Dates: start: 20131005, end: 20131015
  2. PIVMECILLINAM [Concomitant]
     Active Substance: AMDINOCILLIN PIVOXIL
     Indication: URINARY TRACT INFECTION
     Dosage: 400 MILLIGRAM, BID
     Route: 048
     Dates: start: 20130909, end: 20130915
  3. METHOTREXATE. [Suspect]
     Active Substance: METHOTREXATE
     Indication: RHEUMATOID ARTHRITIS
     Dosage: 10 MILLIGRAM, WEEKLY
     Route: 048
     Dates: start: 2013

REACTIONS (5)
  - Pancytopenia [Recovered/Resolved]
  - Haematoma [Unknown]
  - Drug interaction [Unknown]
  - Lower respiratory tract congestion [Unknown]
  - Lung disorder [Unknown]
